FAERS Safety Report 6756041-2 (Version None)
Quarter: 2010Q2

REPORT INFORMATION
  Report Type: 
  Country: None (occurrence: None)
  Receive Date: 20100604
  Receipt Date: 20100531
  Transmission Date: 20101027
  Serious: Yes (Other)
  Sender: FDA-Public Use
  Company Number: JP-SHIRE-SPV1-2010-01035

PATIENT

DRUGS (12)
  1. LANTHANUM CARBONATE [Suspect]
     Indication: HYPERPHOSPHATAEMIA
     Route: 048
     Dates: start: 20090909, end: 20100210
  2. LANTHANUM CARBONATE [Suspect]
     Route: 048
     Dates: start: 20100210
  3. SEVELAMER HYDROCHLORIDE [Concomitant]
     Indication: HYPERPHOSPHATAEMIA
     Route: 048
  4. CALCIUM CARBONATE [Concomitant]
     Indication: HYPERPHOSPHATAEMIA
     Dosage: 3 G, UNK
     Route: 048
     Dates: start: 20020101
  5. BASEN [Concomitant]
     Dosage: .3 MG, UNK
     Route: 048
  6. NORVASC [Concomitant]
     Dosage: 5 MG, UNK
     Route: 048
  7. ARTIST [Concomitant]
     Dosage: 2.5 MG, UNK
     Route: 048
  8. NU-LOTAN [Concomitant]
     Dosage: 2.5 MG, UNK
     Route: 048
  9. OPALMON [Concomitant]
     Dosage: 20 UG, UNK
     Route: 048
  10. EPADEL                             /01682401/ [Concomitant]
     Dosage: 1200 MG, UNK
     Route: 048
  11. KALIMATE [Concomitant]
     Dosage: 5 G, UNK
     Route: 048
     Dates: start: 20090909
  12. TOKISYAKUYAKUSAN [Concomitant]
     Dosage: 7.5 G, UNK
     Route: 048

REACTIONS (1)
  - GASTRIC ULCER [None]
